FAERS Safety Report 9409680 (Version 1)
Quarter: 2013Q3

REPORT INFORMATION
  Report Type: Report from Study
  Country: AR (occurrence: AR)
  Receive Date: 20130719
  Receipt Date: 20130719
  Transmission Date: 20140515
  Serious: Yes (Hospitalization)
  Sender: FDA-Public Use
  Company Number: PHHY2013AR076529

PATIENT
  Age: 60 Year
  Sex: Female

DRUGS (3)
  1. TEGRETOL [Suspect]
     Indication: TRIGEMINAL NERVE DISORDER
     Dosage: 3 OR 4 A DAY
     Route: 048
     Dates: end: 201211
  2. DIOVAN [Suspect]
     Indication: HYPERTENSION
     Dosage: 80 MG, ONE DAILY
     Route: 048
  3. DIOVAN [Suspect]
     Dosage: 160 MG, ONE DAILY
     Route: 048

REACTIONS (2)
  - Blood sodium decreased [Unknown]
  - Trigeminal nerve disorder [Unknown]
